FAERS Safety Report 4745260-2 (Version None)
Quarter: 2005Q3

REPORT INFORMATION
  Report Type: 
  Country: None (occurrence: None)
  Receive Date: 20050812
  Receipt Date: 20050802
  Transmission Date: 20060218
  Serious: Yes (Other)
  Sender: FDA-Public Use
  Company Number: 2005061585

PATIENT
  Age: 49 Year
  Sex: Female

DRUGS (2)
  1. BEXTRA [Suspect]
     Indication: THYROIDITIS ACUTE
     Dosage: 40 MG, ORAL
     Route: 048
     Dates: start: 20050301, end: 20050401
  2. CAPTOPRIL [Concomitant]

REACTIONS (4)
  - DRY SKIN [None]
  - GENERAL PHYSICAL HEALTH DETERIORATION [None]
  - HYPERSENSITIVITY [None]
  - THYROID PAIN [None]
